FAERS Safety Report 20331583 (Version 1)
Quarter: 2022Q1

REPORT INFORMATION
  Report Type: Other
  Country: CN (occurrence: None)
  Receive Date: 20220113
  Receipt Date: 20220113
  Transmission Date: 20220423
  Serious: Yes (Other)
  Sender: FDA-Public Use
  Company Number: CN-ROCHE-2996234

PATIENT

DRUGS (1)
  1. BEVACIZUMAB [Suspect]
     Active Substance: BEVACIZUMAB
     Indication: Non-small cell lung cancer
     Dosage: 100 MG/4 ML
     Route: 042

REACTIONS (3)
  - Hepatic function abnormal [Unknown]
  - Thrombocytopenia [Unknown]
  - Neutropenia [Unknown]
